FAERS Safety Report 20637131 (Version 3)
Quarter: 2022Q2

REPORT INFORMATION
  Report Type: Spontaneous
  Country: CA (occurrence: CA)
  Receive Date: 20220325
  Receipt Date: 20220408
  Transmission Date: 20220721
  Serious: Yes (Disabling, Other)
  Sender: FDA-Public Use
  Company Number: CA-SANOFI-01025599

PATIENT
  Age: 88 Year
  Sex: Female

DRUGS (2)
  1. LANTUS [Suspect]
     Active Substance: INSULIN GLARGINE
     Dosage: 32-40UNITS
     Route: 058
  2. NOVORAPID [Concomitant]
     Active Substance: INSULIN ASPART
     Dosage: UNK

REACTIONS (8)
  - Wheelchair user [Unknown]
  - Gastrointestinal injury [Recovered/Resolved]
  - Cerebrovascular accident [Recovered/Resolved]
  - Cerebrovascular accident [Recovering/Resolving]
  - Skin injury [Recovering/Resolving]
  - Hypoacusis [Not Recovered/Not Resolved]
  - Device difficult to use [Unknown]
  - Product use issue [Unknown]

NARRATIVE: CASE EVENT DATE: 20220301
